FAERS Safety Report 19470299 (Version 1)
Quarter: 2021Q2

REPORT INFORMATION
  Report Type: Spontaneous
  Country: CN (occurrence: CN)
  Receive Date: 20210628
  Receipt Date: 20210628
  Transmission Date: 20210717
  Serious: Yes (Hospitalization, Other)
  Sender: FDA-Public Use
  Company Number: CN-PFIZER INC-2021738963

PATIENT
  Age: 42 Year
  Sex: Male
  Weight: 64 kg

DRUGS (6)
  1. CYTOSAR [Suspect]
     Active Substance: CYTARABINE
     Indication: CHEMOTHERAPY
     Dosage: 0.05 G, 1X/DAY
     Route: 037
     Dates: start: 20210526, end: 20210526
  2. CYTOSAR [Suspect]
     Active Substance: CYTARABINE
     Dosage: 3.5 G, 2X/DAY
     Route: 041
     Dates: start: 20210527, end: 20210529
  3. SODIUM CHLORIDE 0.9% [Concomitant]
     Active Substance: SODIUM CHLORIDE
     Dosage: 500 ML, 2X/DAY
     Route: 041
     Dates: start: 20210527, end: 20210529
  4. DEXAMETHASONE SODIUM PHOSPHATE. [Concomitant]
     Active Substance: DEXAMETHASONE SODIUM PHOSPHATE
     Indication: CHEMOTHERAPY
     Dosage: 5 MG, 1X/DAY
     Route: 037
     Dates: start: 20210526, end: 20210526
  5. METHOTREXATE. [Suspect]
     Active Substance: METHOTREXATE
     Indication: CHEMOTHERAPY
     Dosage: 10 MG, 1X/DAY
     Route: 037
     Dates: start: 20210526, end: 20210526
  6. SODIUM CHLORIDE 0.9% [Concomitant]
     Active Substance: SODIUM CHLORIDE
     Indication: VEHICLE SOLUTION USE
     Dosage: 3 ML, 1X/DAY
     Route: 037
     Dates: start: 20210526, end: 20210526

REACTIONS (3)
  - Agranulocytosis [Recovering/Resolving]
  - Myelosuppression [Recovering/Resolving]
  - Platelet count decreased [Recovering/Resolving]

NARRATIVE: CASE EVENT DATE: 20210604
